FAERS Safety Report 6192762-0 (Version None)
Quarter: 2009Q2

REPORT INFORMATION
  Report Type: 
  Country: None (occurrence: None)
  Receive Date: 20090518
  Receipt Date: 20080717
  Transmission Date: 20091009
  Serious: No
  Sender: FDA-Public Use
  Company Number: US-TYCO HEALTHCARE/MALLINCKRODT-T200801210

PATIENT

DRUGS (1)
  1. ACETAMINOPHEN AND HYDROCODONE BITARTRATE [Suspect]
     Indication: PAIN
     Dosage: 1 TAB, PRN
     Route: 048

REACTIONS (10)
  - ABDOMINAL DISTENSION [None]
  - BURN OESOPHAGEAL [None]
  - DYSPEPSIA [None]
  - GLOSSODYNIA [None]
  - HAEMATEMESIS [None]
  - HYPOAESTHESIA ORAL [None]
  - MYALGIA [None]
  - NAUSEA [None]
  - ORAL DISCOMFORT [None]
  - VOMITING [None]
